FAERS Safety Report 17741527 (Version 2)
Quarter: 2020Q2

REPORT INFORMATION
  Report Type: Spontaneous
  Country: FR (occurrence: FR)
  Receive Date: 20200504
  Receipt Date: 20200513
  Transmission Date: 20200714
  Serious: Yes (Life-Threatening, Hospitalization)
  Sender: FDA-Public Use
  Company Number: FR-TEVA-2020-FR-1231237

PATIENT
  Age: 72 Year
  Sex: Male

DRUGS (5)
  1. LORAZEPAM. [Suspect]
     Active Substance: LORAZEPAM
     Indication: MALIGNANT CATATONIA
     Dosage: INITIAL DOSE UNKNOWN; FURTHER ADMINISTERED WITH INCREASING DOSE UP TO 12.5 MG
     Route: 065
  2. HALOPERIDOL. [Suspect]
     Active Substance: HALOPERIDOL
     Indication: BIPOLAR DISORDER
     Route: 065
  3. LORAZEPAM. [Suspect]
     Active Substance: LORAZEPAM
     Indication: MALIGNANT CATATONIA
     Route: 065
  4. PHENELZINE [Suspect]
     Active Substance: PHENELZINE
     Indication: BIPOLAR DISORDER
     Dosage: 45 MILLIGRAM DAILY;
     Route: 065
  5. LAMOTRIGINE. [Suspect]
     Active Substance: LAMOTRIGINE
     Indication: BIPOLAR DISORDER
     Route: 065

REACTIONS (5)
  - Condition aggravated [Recovered/Resolved]
  - Unmasking of previously unidentified disease [Unknown]
  - Malignant catatonia [Recovered/Resolved]
  - Dementia with Lewy bodies [Unknown]
  - Drug ineffective [Unknown]
